FAERS Safety Report 9918727 (Version 1)
Quarter: 2014Q1

REPORT INFORMATION
  Report Type: Report from Study
  Country: CA (occurrence: CA)
  Receive Date: 20140224
  Receipt Date: 20140224
  Transmission Date: 20141002
  Serious: Yes (Hospitalization)
  Sender: FDA-Public Use
  Company Number: CA-ROCHE-1354317

PATIENT
  Age: 59 Year
  Sex: Female

DRUGS (8)
  1. RITUXAN [Suspect]
     Indication: RHEUMATOID ARTHRITIS
     Dosage: DAY 1, 15
     Route: 042
     Dates: start: 20100303
  2. METHYLPREDNISOLONE [Concomitant]
     Route: 042
     Dates: start: 20100303
  3. DIPHENHYDRAMINE HCL [Concomitant]
     Indication: PREMEDICATION
     Route: 048
     Dates: start: 20100303
  4. ACETAMINOPHEN [Concomitant]
     Indication: PREMEDICATION
     Route: 048
     Dates: start: 20100303
  5. METHOTREXATE [Concomitant]
  6. ARAVA [Concomitant]
     Route: 065
     Dates: start: 201206
  7. VOLTAREN [Concomitant]
  8. TYLENOL [Concomitant]

REACTIONS (2)
  - Cholelithiasis [Recovered/Resolved]
  - Pancreatitis [Recovered/Resolved]
